FAERS Safety Report 8892403 (Version 2)
Quarter: 2012Q4

REPORT INFORMATION
  Report Type: 
  Country: US (occurrence: US)
  Receive Date: 20121107
  Receipt Date: 20121126
  Transmission Date: 20130627
  Serious: Yes (Other)
  Sender: FDA-Public Use
  Company Number: US-GLAXOSMITHKLINE-A1000163A

PATIENT
  Age: 0 Year
  Sex: Male
  Weight: 1.1 kg

DRUGS (1)
  1. PAROXETINE [Suspect]
     Indication: PRODUCT USED FOR UNKNOWN INDICATION
     Dosage: 20MG Per day
     Route: 064
     Dates: start: 20081022, end: 20100224

REACTIONS (7)
  - Respiratory distress [Unknown]
  - Pulmonary haemorrhage [Unknown]
  - Apnoea [Unknown]
  - Premature baby [Unknown]
  - Abdominal distension [Unknown]
  - Intestinal dilatation [Unknown]
  - Foetal exposure during pregnancy [Unknown]
